FAERS Safety Report 23556016 (Version 1)
Quarter: 2024Q1

REPORT INFORMATION
  Report Type: Report from Study
  Country: CA (occurrence: CA)
  Receive Date: 20240222
  Receipt Date: 20240222
  Transmission Date: 20240410
  Serious: Yes (Hospitalization)
  Sender: FDA-Public Use
  Company Number: CA-TAKEDA-2021TUS025911

PATIENT
  Age: 39 Year
  Sex: Male

DRUGS (11)
  1. LANADELUMAB [Suspect]
     Active Substance: LANADELUMAB
     Indication: Hereditary angioedema with C1 esterase inhibitor deficiency
     Dosage: 300 MILLIGRAM, Q2WEEKS
     Route: 058
     Dates: start: 20210304
  2. LANADELUMAB [Suspect]
     Active Substance: LANADELUMAB
     Dosage: 2 DOSAGE FORM, Q2WEEKS
     Route: 050
  3. LANADELUMAB [Suspect]
     Active Substance: LANADELUMAB
     Dosage: 2 DOSAGE FORM, Q2WEEKS
     Route: 058
  4. LANADELUMAB [Suspect]
     Active Substance: LANADELUMAB
     Dosage: 300 MILLIGRAM, Q2WEEKS
     Route: 065
     Dates: start: 20210304
  5. FIRAZYR [Suspect]
     Active Substance: ICATIBANT ACETATE
     Indication: Hereditary angioedema with C1 esterase inhibitor deficiency
     Dosage: UNK, Q2WEEKS
     Route: 065
     Dates: start: 202102
  6. FIRAZYR [Suspect]
     Active Substance: ICATIBANT ACETATE
     Indication: Hereditary angioedema with C1 esterase inhibitor deficiency
     Dosage: UNK, Q2WEEKS
     Route: 065
     Dates: start: 202102
  7. DEXILANT [Suspect]
     Active Substance: DEXLANSOPRAZOLE
     Indication: Product used for unknown indication
     Dosage: 16 MILLIGRAM
     Route: 065
  8. PULMICORT TURBUHALER [Concomitant]
     Active Substance: BUDESONIDE
     Dosage: 1 MILLIGRAM, BID
     Route: 065
  9. TACROLIMUS [Concomitant]
     Active Substance: TACROLIMUS
     Indication: Psoriasis
     Dosage: UNK
     Route: 061
  10. ACARIZAX [Concomitant]
     Active Substance: DERMATOPHAGOIDES FARINAE\DERMATOPHAGOIDES PTERONYSSINUS
     Dosage: UNK
     Route: 065
  11. VITAMIN D3 [Concomitant]
     Active Substance: CHOLECALCIFEROL
     Dosage: 2000 INTERNATIONAL UNIT, QD
     Route: 065
     Dates: start: 20240103

REACTIONS (6)
  - Hospitalisation [Unknown]
  - Depressed mood [Recovering/Resolving]
  - Psoriasis [Not Recovered/Not Resolved]
  - Hereditary angioedema [Recovering/Resolving]
  - Inappropriate schedule of product administration [Unknown]
  - Product use issue [Unknown]

NARRATIVE: CASE EVENT DATE: 20240215
